FAERS Safety Report 23012628 (Version 2)
Quarter: 2023Q4

REPORT INFORMATION
  Report Type: Spontaneous
  Country: AU (occurrence: AU)
  Receive Date: 20230930
  Receipt Date: 20231020
  Transmission Date: 20240109
  Serious: Yes (Hospitalization)
  Sender: FDA-Public Use
  Company Number: AU-AMGEN-AUSSP2023171743

PATIENT
  Age: 35 Year
  Sex: Female
  Weight: 57 kg

DRUGS (15)
  1. PEGFILGRASTIM [Suspect]
     Active Substance: PEGFILGRASTIM
     Indication: Prophylaxis
     Dosage: 6 MILLIGRAM, AFTER CHEMOTHERAPY
     Route: 058
     Dates: start: 20191011
  2. ALLOPURINOL [Concomitant]
     Active Substance: ALLOPURINOL
     Dosage: 300 MILLIGRAM
     Dates: start: 20190910
  3. BACTRIM [Concomitant]
     Active Substance: SULFAMETHOXAZOLE\TRIMETHOPRIM
     Dosage: UNK, BID
     Dates: start: 20190911
  4. VALACYCLOVIR [Concomitant]
     Active Substance: VALACYCLOVIR HYDROCHLORIDE
     Dosage: 500 MILLIGRAM
     Dates: start: 20190911
  5. RANITIDINE [Concomitant]
     Active Substance: RANITIDINE
     Dosage: 150 MILLIGRAM BID
     Dates: start: 20190921
  6. DOXORUBICIN [Concomitant]
     Active Substance: DOXORUBICIN
     Dosage: 35 MILLIGRAM/SQ. METER
     Dates: start: 20191001
  7. BLEOMYCIN [Concomitant]
     Active Substance: BLEOMYCIN SULFATE
     Dosage: 100000 METER SQUARE
     Dates: start: 20191005
  8. BRENTUXIMAB VEDOTIN [Concomitant]
     Active Substance: BRENTUXIMAB VEDOTIN
     Dosage: UNK
  9. CYCLOPHOSPHAMIDE [Concomitant]
     Active Substance: CYCLOPHOSPHAMIDE
     Dosage: 1250 MILLIGRAM/SQ. METER
     Dates: start: 20191001
  10. DACARBAZINE [Concomitant]
     Active Substance: DACARBAZINE
     Dosage: UNK
  11. DEXAMETHASONE [Concomitant]
     Active Substance: DEXAMETHASONE
     Dosage: UNK
  12. ETOPOSIDE [Concomitant]
     Active Substance: ETOPOSIDE
     Dosage: 200 MILLIGRAM/SQ. METER
     Dates: start: 20191001
  13. PROCARBAZINE [Concomitant]
     Active Substance: PROCARBAZINE
     Dosage: 100 MILLIGRAM/SQ. METER
     Dates: start: 20191001
  14. PREDNISONE [Concomitant]
     Active Substance: PREDNISONE
     Dosage: 40 MILLIGRAM/SQ. METER
     Dates: start: 20191001
  15. VINCRISTINE [Concomitant]
     Active Substance: VINCRISTINE
     Dosage: 1.4 MILLIGRAM/SQ. METER
     Dates: start: 20191005

REACTIONS (1)
  - Back pain [Recovered/Resolved]

NARRATIVE: CASE EVENT DATE: 20191014
